FAERS Safety Report 6876253-7 (Version None)
Quarter: 2010Q3

REPORT INFORMATION
  Report Type: 
  Country: None (occurrence: None)
  Receive Date: 20100727
  Receipt Date: 20100726
  Transmission Date: 20110219
  Serious: Yes (Congenital Anomaly)
  Sender: FDA-Public Use
  Company Number: A0872222A

PATIENT
  Sex: Male

DRUGS (23)
  1. COMBIVIR [Suspect]
     Indication: HIV INFECTION
     Dates: start: 20060309, end: 20060322
  2. VIDEX [Suspect]
     Indication: HIV INFECTION
     Dates: start: 20060117, end: 20060131
  3. VIRACEPT [Suspect]
     Indication: HIV INFECTION
     Dates: start: 20060309, end: 20060322
  4. PARACETAMOL [Concomitant]
  5. POTASSIUM CHLORIDE [Concomitant]
  6. RANITIDINE [Concomitant]
  7. TERBUTALINE SULFATE [Concomitant]
  8. TRAMADOL HYDROCHLORIDE [Concomitant]
  9. ACYCLOVIR [Concomitant]
  10. AMPHOTERICIN B [Concomitant]
  11. BACTRIM [Concomitant]
  12. BETAMETHASONE [Concomitant]
  13. CEFEPIME [Concomitant]
  14. CEFTRIAXONE [Concomitant]
  15. DEXAMETHASONE [Concomitant]
  16. DIAZEPAM [Concomitant]
  17. FERROUS SULFATE TAB [Concomitant]
  18. HYOSCINE HBR HYT [Concomitant]
  19. METAMIZOLE SODIUM [Concomitant]
  20. METOCLOPRAMIDE [Concomitant]
  21. NEOMYCIN [Concomitant]
  22. NYSTATIN [Concomitant]
  23. ONDANSETRON [Concomitant]

REACTIONS (2)
  - DRUG EXPOSURE DURING PREGNANCY [None]
  - POLYDACTYLY [None]
